FAERS Safety Report 7417989-9 (Version None)
Quarter: 2011Q2

REPORT INFORMATION
  Report Type: 
  Country: None (occurrence: None)
  Receive Date: 20110415
  Receipt Date: 20110405
  Transmission Date: 20111010
  Serious: Yes (Hospitalization, Other)
  Sender: FDA-Public Use
  Company Number: US-ROCHE-754835

PATIENT
  Sex: Male
  Weight: 65.8 kg

DRUGS (2)
  1. ACCUTANE [Suspect]
     Indication: ACNE
     Route: 065
     Dates: start: 19960201, end: 19960801
  2. ACCUTANE [Suspect]
     Route: 065
     Dates: start: 19970201, end: 19970801

REACTIONS (6)
  - CROHN'S DISEASE [None]
  - INTESTINAL HAEMORRHAGE [None]
  - DEPRESSION [None]
  - INFLAMMATORY BOWEL DISEASE [None]
  - INTESTINAL OBSTRUCTION [None]
  - EMOTIONAL DISTRESS [None]
